FAERS Safety Report 15517307 (Version 2)
Quarter: 2019Q2

REPORT INFORMATION
  Report Type: Spontaneous
  Country: BE (occurrence: BE)
  Receive Date: 20181017
  Receipt Date: 20190516
  Transmission Date: 20190711
  Serious: Yes (Hospitalization, Other)
  Sender: FDA-Public Use
  Company Number: BE-ASTRAZENECA-2018SF33142

PATIENT
  Age: 68 Year
  Sex: Female
  Weight: 58 kg

DRUGS (9)
  1. DAFALGAN [Concomitant]
     Active Substance: ACETAMINOPHEN
     Indication: PRODUCT USED FOR UNKNOWN INDICATION
     Dosage: 1.0G UNKNOWN
     Route: 048
  2. EMCONCOR [Concomitant]
     Active Substance: BISOPROLOL FUMARATE
     Dosage: 2.5MG - 5 MG EVERY OTHER DAY
     Route: 048
     Dates: start: 2010
  3. FELDENE [Interacting]
     Active Substance: PIROXICAM
     Indication: RHEUMATOID ARTHRITIS
     Route: 048
     Dates: start: 2009
  4. OESTROGEL [Concomitant]
     Active Substance: ESTRADIOL
     Route: 065
     Dates: start: 2013
  5. METHOTREXATE. [Interacting]
     Active Substance: METHOTREXATE
     Indication: PNEUMONIA
     Route: 048
     Dates: start: 2008
  6. OMEPRAZOLE. [Suspect]
     Active Substance: OMEPRAZOLE
     Indication: PROPHYLAXIS
     Route: 048
     Dates: start: 2009
  7. LEDERTREXATE [Interacting]
     Active Substance: METHOTREXATE
     Indication: RHEUMATOID ARTHRITIS
     Route: 048
     Dates: start: 2000, end: 20180829
  8. UTROGESTAN [Concomitant]
     Active Substance: PROGESTERONE
     Route: 048
     Dates: start: 2013
  9. UTROGESTAN VAGINAL [Concomitant]
     Indication: PRODUCT USED FOR UNKNOWN INDICATION
     Dosage: 200.0MG UNKNOWN
     Route: 065

REACTIONS (3)
  - Pneumonia [Recovering/Resolving]
  - Hypersensitivity pneumonitis [Recovering/Resolving]
  - Drug interaction [Recovering/Resolving]

NARRATIVE: CASE EVENT DATE: 20180827
